FAERS Safety Report 8481375-3 (Version None)
Quarter: 2012Q2

REPORT INFORMATION
  Report Type: 
  Country: None (occurrence: None)
  Receive Date: 20120626
  Receipt Date: 20120626
  Transmission Date: 20120825
  Serious: No
  Sender: FDA-Public Use
  Company Number: None

PATIENT
  Age: 72 Year
  Sex: Male
  Weight: 92.1 kg

DRUGS (2)
  1. AZACITIDINE [Suspect]
     Indication: ACUTE MYELOID LEUKAEMIA
     Dosage: 75MG/M2 DAILY 1-5 SUBCUTANEOUS
     Route: 058
     Dates: start: 20120605, end: 20120609
  2. LENALIDOMIDE [Suspect]
     Indication: ACUTE MYELOID LEUKAEMIA
     Dosage: 50MG DAILY 1-28 ORAL
     Route: 048
     Dates: start: 20120605

REACTIONS (1)
  - RECTAL HAEMORRHAGE [None]
